FAERS Safety Report 21335414 (Version 1)
Quarter: 2022Q3

REPORT INFORMATION
  Report Type: Spontaneous
  Country: US (occurrence: US)
  Receive Date: 20220915
  Receipt Date: 20220915
  Transmission Date: 20221026
  Serious: Yes (Other)
  Sender: FDA-Public Use
  Company Number: US-NOVARTISPH-NVSC2022US205577

PATIENT
  Sex: Male

DRUGS (1)
  1. PROMACTA [Suspect]
     Active Substance: ELTROMBOPAG OLAMINE
     Indication: Hepatic mass
     Dosage: 50 MG, QD
     Route: 048
     Dates: start: 202208

REACTIONS (4)
  - Haematochezia [Recovered/Resolved]
  - Constipation [Unknown]
  - Bowel movement irregularity [Unknown]
  - Product use in unapproved indication [Unknown]
